APPROVED DRUG PRODUCT: OMEPRAZOLE
Active Ingredient: OMEPRAZOLE
Strength: 20MG
Dosage Form/Route: TABLET, DELAYED RELEASE;ORAL
Application: A210070 | Product #001
Applicant: APOTEX INC
Approved: Feb 11, 2019 | RLD: No | RS: No | Type: DISCN